FAERS Safety Report 8484355-7 (Version None)
Quarter: 2012Q3

REPORT INFORMATION
  Report Type: 
  Country: None (occurrence: None)
  Receive Date: 20120703
  Receipt Date: 20120627
  Transmission Date: 20120928
  Serious: Yes (Other)
  Sender: FDA-Public Use
  Company Number: PHHY2012AU056069

PATIENT
  Sex: Female
  Weight: 34 kg

DRUGS (1)
  1. SANDOSTATIN LAR [Suspect]
     Dosage: 30 MG, UNK
     Route: 030

REACTIONS (5)
  - DECREASED APPETITE [None]
  - UNDERDOSE [None]
  - MUSCLE ATROPHY [None]
  - CACHEXIA [None]
  - SYRINGE ISSUE [None]
